FAERS Safety Report 13452466 (Version 1)
Quarter: 2017Q2

REPORT INFORMATION
  Report Type: Spontaneous
  Country: US (occurrence: US)
  Receive Date: 20170418
  Receipt Date: 20170418
  Transmission Date: 20170830
  Serious: Yes (Hospitalization, Other)
  Sender: FDA-Public Use
  Company Number: US-TEVA-657961USA

PATIENT
  Age: 74 Year
  Sex: Female
  Weight: 79.8 kg

DRUGS (8)
  1. WARFARIN [Suspect]
     Active Substance: WARFARIN
     Route: 048
  2. WARFARIN [Suspect]
     Active Substance: WARFARIN
     Route: 048
  3. CALCIUM WITH VITAMIN D [Concomitant]
     Active Substance: CALCIUM\VITAMIN D
     Indication: BONE DISORDER
     Dosage: 120/1000 MG
  4. XGEVA [Concomitant]
     Active Substance: DENOSUMAB
     Indication: BONE DISORDER
     Route: 042
     Dates: start: 2015
  5. AFINITOR [Suspect]
     Active Substance: EVEROLIMUS
     Indication: NEOPLASM MALIGNANT
     Dosage: 10 MILLIGRAM DAILY;
     Route: 048
     Dates: start: 20160304
  6. EXEMESTANE. [Suspect]
     Active Substance: EXEMESTANE
     Indication: NEOPLASM MALIGNANT
     Dosage: 25 MILLIGRAM DAILY;
     Route: 048
     Dates: start: 20160304
  7. TRAMADOL. [Concomitant]
     Active Substance: TRAMADOL
     Indication: PAIN
     Route: 048
  8. IMODIUM [Concomitant]
     Active Substance: LOPERAMIDE HYDROCHLORIDE
     Indication: DIARRHOEA

REACTIONS (4)
  - Haematocrit decreased [Recovering/Resolving]
  - Haematochezia [Recovering/Resolving]
  - International normalised ratio increased [Recovering/Resolving]
  - Haemoglobin decreased [Recovering/Resolving]

NARRATIVE: CASE EVENT DATE: 20160418
